FAERS Safety Report 6408390-5 (Version None)
Quarter: 2009Q4

REPORT INFORMATION
  Report Type: 
  Country: None (occurrence: None)
  Receive Date: 20091019
  Receipt Date: 20061206
  Transmission Date: 20100525
  Serious: Yes (Other)
  Sender: FDA-Public Use
  Company Number: 2009009215

PATIENT
  Sex: Female

DRUGS (1)
  1. ACTIQ [Suspect]
     Indication: PAIN
     Dosage: BU
     Route: 002

REACTIONS (2)
  - NEOPLASM MALIGNANT [None]
  - OPTIC NERVE NEOPLASM [None]
